FAERS Safety Report 4595802-5 (Version None)
Quarter: 2005Q1

REPORT INFORMATION
  Report Type: 
  Country: None (occurrence: None)
  Receive Date: 20050224
  Receipt Date: 20050224
  Transmission Date: 20050727
  Serious: Yes (Life-Threatening)
  Sender: FDA-Public Use
  Company Number: None

PATIENT
  Sex: Female
  Weight: 75 kg

DRUGS (4)
  1. VANCOMYCIN HCL [Suspect]
     Indication: ENTEROCOCCAL BACTERAEMIA
     Dosage: 1250MG Q24HOURS INTRAVENOU
     Route: 042
     Dates: start: 20041123, end: 20041209
  2. FLAGYL [Concomitant]
  3. TEQUIN [Concomitant]
  4. VANCOMYCIN [Concomitant]

REACTIONS (11)
  - ASTHENIA [None]
  - BODY TEMPERATURE INCREASED [None]
  - DECREASED APPETITE [None]
  - HYPOTENSION [None]
  - PRURITUS [None]
  - RASH ERYTHEMATOUS [None]
  - RASH PRURITIC [None]
  - RENAL FAILURE ACUTE [None]
  - RESPIRATORY FAILURE [None]
  - SEPSIS [None]
  - STEVENS-JOHNSON SYNDROME [None]
